FAERS Safety Report 20152174 (Version 1)
Quarter: 2021Q4

REPORT INFORMATION
  Report Type: Spontaneous
  Country: CN (occurrence: CN)
  Receive Date: 20211206
  Receipt Date: 20211206
  Transmission Date: 20220303
  Serious: Yes (Other)
  Sender: FDA-Public Use
  Company Number: CN-PFIZER INC-202101676721

PATIENT
  Age: 21 Month
  Sex: Female

DRUGS (1)
  1. METHOTREXATE [Suspect]
     Active Substance: METHOTREXATE
     Indication: Leukaemia
     Dosage: 50 MG, 1X/DAY
     Route: 037
     Dates: start: 20211120, end: 20211121

REACTIONS (4)
  - Drug hypersensitivity [Recovering/Resolving]
  - Eye oedema [Recovering/Resolving]
  - Rash erythematous [Recovering/Resolving]
  - Rash pruritic [Recovering/Resolving]

NARRATIVE: CASE EVENT DATE: 20211121
